FAERS Safety Report 20692511 (Version 1)
Quarter: 2022Q2

REPORT INFORMATION
  Report Type: Spontaneous
  Country: US (occurrence: US)
  Receive Date: 20220409
  Receipt Date: 20220409
  Transmission Date: 20220721
  Serious: Yes (Hospitalization, Other)
  Sender: FDA-Public Use
  Company Number: US-009507513-2204USA002301

PATIENT

DRUGS (2)
  1. INVANZ [Suspect]
     Active Substance: ERTAPENEM SODIUM
     Indication: Staphylococcal infection
     Dosage: UNK, 12 DAYS OF THERAPY
  2. INVANZ [Suspect]
     Active Substance: ERTAPENEM SODIUM
     Indication: Bacterial infection

REACTIONS (2)
  - Clostridium difficile infection [Unknown]
  - Product use in unapproved indication [Unknown]
